FAERS Safety Report 8914909 (Version 1)
Quarter: 2012Q4

REPORT INFORMATION
  Report Type: 
  Country: GR (occurrence: GR)
  Receive Date: 20121119
  Receipt Date: 20121119
  Transmission Date: 20130627
  Serious: Yes (Other)
  Sender: FDA-Public Use
  Company Number: GR-ROCHE-1156569

PATIENT
  Age: 65 Year
  Sex: Male

DRUGS (2)
  1. AVASTIN [Suspect]
     Indication: LUNG ADENOCARCINOMA
     Route: 065
  2. CHEMOTHERAPY NOS [Concomitant]
     Indication: LUNG ADENOCARCINOMA

REACTIONS (2)
  - Hypertension [Not Recovered/Not Resolved]
  - Blood creatinine increased [Unknown]
